FAERS Safety Report 5453102-5 (Version None)
Quarter: 2007Q3

REPORT INFORMATION
  Report Type: 
  Country: None (occurrence: None)
  Receive Date: 20070914
  Receipt Date: 20070904
  Transmission Date: 20080115
  Serious: Yes (Other)
  Sender: FDA-Public Use
  Company Number: DE-PFIZER INC-2007070424

PATIENT
  Age: 53 Year
  Sex: Female

DRUGS (5)
  1. LYRICA [Suspect]
     Indication: TRIGEMINAL NEURALGIA
  2. TRAMADOL HCL [Suspect]
  3. ALL OTHER THERAPEUTIC PRODUCTS [Concomitant]
  4. KELTICAN N [Concomitant]
  5. VITAMIN B-12 [Concomitant]

REACTIONS (4)
  - DRUG EFFECT DECREASED [None]
  - OEDEMA [None]
  - PALPITATIONS [None]
  - TINNITUS [None]
